FAERS Safety Report 4691686-5 (Version None)
Quarter: 2005Q2

REPORT INFORMATION
  Report Type: 
  Country: None (occurrence: None)
  Receive Date: 20050608
  Receipt Date: 20040426
  Transmission Date: 20051028
  Serious: Yes (Other)
  Sender: FDA-Public Use
  Company Number: 359100

PATIENT
  Age: 46 Year
  Sex: Female

DRUGS (3)
  1. ACCUTANE [Suspect]
     Indication: ACNE
     Dosage: ORAL
     Route: 048
     Dates: start: 20030228, end: 20030630
  2. ACCUTANE [Suspect]
     Indication: ACNE
     Dosage: ORAL
     Route: 048
     Dates: start: 20030228, end: 20030630
  3. CENESTIN [Suspect]
     Indication: POSTMENOPAUSE
     Dosage: ORAL
     Dates: start: 20030515

REACTIONS (7)
  - ALOPECIA [None]
  - DEPRESSION [None]
  - DRY SKIN [None]
  - HYPOTRICHOSIS [None]
  - NEURODERMATITIS [None]
  - RASH SCALY [None]
  - SKIN FIBROSIS [None]
